FAERS Safety Report 18675252 (Version 1)
Quarter: 2020Q4

REPORT INFORMATION
  Report Type: Spontaneous
  Country: US (occurrence: US)
  Receive Date: 20201228
  Receipt Date: 20201228
  Transmission Date: 20210114
  Serious: Yes (Other)
  Sender: FDA-Public Use
  Company Number: None

PATIENT
  Age: 67 Year
  Sex: Female
  Weight: 53.1 kg

DRUGS (13)
  1. POTASSIUM [Concomitant]
     Active Substance: POTASSIUM
  2. VITAMIN C [Concomitant]
     Active Substance: ASCORBIC ACID
  3. QUERCETIN [Concomitant]
     Active Substance: QUERCETIN
  4. VITAMIN D3 [Concomitant]
     Active Substance: CHOLECALCIFEROL
  5. PROGESTERONE. [Concomitant]
     Active Substance: PROGESTERONE
  6. DIURETIC [Concomitant]
     Active Substance: UNSPECIFIED INGREDIENT
  7. DILTIAZEM 24H ER (CD) 120MG [Suspect]
     Active Substance: DILTIAZEM HYDROCHLORIDE
     Indication: HYPERTENSION
     Dosage: ?
     Route: 048
     Dates: start: 20201110, end: 20201223
  8. ESTROGEN [Concomitant]
     Active Substance: ESTROGENS
  9. RED YEAST RICE [Concomitant]
     Active Substance: DIETARY SUPPLEMENT
  10. WELLBUTRIN [Concomitant]
     Active Substance: BUPROPION HYDROCHLORIDE
  11. ARMOUR THYROID [Concomitant]
     Active Substance: THYROID, PORCINE
  12. ZINC. [Concomitant]
     Active Substance: ZINC
  13. KRILL OIL [Concomitant]
     Active Substance: DIETARY SUPPLEMENT\KRILL OIL

REACTIONS (2)
  - Rash [None]
  - Hypersensitivity [None]

NARRATIVE: CASE EVENT DATE: 20201223
